FAERS Safety Report 6629299-8 (Version None)
Quarter: 2010Q1

REPORT INFORMATION
  Report Type: 
  Country: None (occurrence: None)
  Receive Date: 20100311
  Receipt Date: 20090804
  Transmission Date: 20100710
  Serious: No
  Sender: FDA-Public Use
  Company Number: US-BIOGENIDEC-2009BI024222

PATIENT
  Age: 58 Year
  Sex: Female

DRUGS (3)
  1. AVONEX [Suspect]
     Indication: MULTIPLE SCLEROSIS
     Route: 030
     Dates: start: 20010101, end: 20090401
  2. AVONEX [Suspect]
     Route: 030
     Dates: start: 20030101, end: 20090401
  3. AVONEX [Suspect]
     Route: 030
     Dates: start: 20090711

REACTIONS (3)
  - ARTHRITIS [None]
  - FATIGUE [None]
  - MUSCULAR WEAKNESS [None]
